FAERS Safety Report 16650425 (Version 1)
Quarter: 2019Q3

REPORT INFORMATION
  Report Type: Spontaneous
  Country: CI (occurrence: CI)
  Receive Date: 20190731
  Receipt Date: 20190731
  Transmission Date: 20191004
  Serious: Yes (Death, Hospitalization, Other)
  Sender: FDA-Public Use
  Company Number: CI-SUN PHARMACEUTICAL INDUSTRIES LTD-2019RR-213872

PATIENT
  Age: 61 Year
  Sex: Female

DRUGS (1)
  1. DICLOFENAC [Suspect]
     Active Substance: DICLOFENAC
     Indication: BACK PAIN
     Dosage: 3X50 MILLIGRAM, UNK
     Route: 048

REACTIONS (2)
  - Self-medication [Unknown]
  - Toxic epidermal necrolysis [Fatal]
